FAERS Safety Report 26062166 (Version 3)
Quarter: 2025Q4

REPORT INFORMATION
  Report Type: Spontaneous
  Country: US (occurrence: US)
  Receive Date: 20251119
  Receipt Date: 20251203
  Transmission Date: 20260118
  Serious: No
  Sender: TOLMAR
  Company Number: US-Tolmar-TLM-2025-08569

PATIENT

DRUGS (3)
  1. ELIGARD [Suspect]
     Active Substance: LEUPROLIDE ACETATE
     Indication: Prostate cancer
     Dosage: LOT NUMBER 15371CUS, EXPIRATION DATE 12-2026, SERIAL NUMBER 8240002717540, NDC?NUMBER 6293546150, GT
  2. ELIGARD [Suspect]
     Active Substance: LEUPROLIDE ACETATE
     Dosage: REPLACEMENT DOSE GIVEN
  3. DEVICE [Suspect]
     Active Substance: DEVICE
     Indication: Prostate cancer
     Dosage: LOT NUMBER 15371CUS, EXPIRATION DATE 12-2026, SERIAL NUMBER 8240002717540, NDC?NUMBER 6293546150, GT

REACTIONS (4)
  - Intercepted product preparation error [Unknown]
  - Device leakage [Unknown]
  - Device malfunction [Unknown]
  - Product preparation error [Unknown]
